FAERS Safety Report 7272873-9 (Version None)
Quarter: 2011Q1

REPORT INFORMATION
  Report Type: 
  Country: None (occurrence: None)
  Receive Date: 20110203
  Receipt Date: 20110201
  Transmission Date: 20110831
  Serious: Yes (Death)
  Sender: FDA-Public Use
  Company Number: CI-GILEAD-2011-0035407

PATIENT
  Age: 48 Year
  Sex: Female
  Weight: 60 kg

DRUGS (2)
  1. EMTRICITABINE/TENOFOVIR DISOPROXIL FUMARATE [Suspect]
     Indication: HIV INFECTION
     Dates: start: 20090205, end: 20100601
  2. BACTRIM [Concomitant]
     Indication: PROPHYLAXIS
     Dates: start: 20090205, end: 20100601

REACTIONS (1)
  - DEATH [None]
